FAERS Safety Report 6490994-5 (Version None)
Quarter: 2009Q4

REPORT INFORMATION
  Report Type: 
  Country: None (occurrence: None)
  Receive Date: 20091211
  Receipt Date: 20091204
  Transmission Date: 20100525
  Serious: Yes (Hospitalization)
  Sender: FDA-Public Use
  Company Number: US-BAYER-200942029GPV

PATIENT
  Age: 70 Year
  Sex: Male

DRUGS (5)
  1. SORAFENIB [Suspect]
     Indication: HEPATIC NEOPLASM MALIGNANT
     Dates: start: 20070901, end: 20071001
  2. SORAFENIB [Interacting]
     Dates: start: 20071101
  3. WARFARIN SODIUM [Interacting]
     Indication: ANTICOAGULANT THERAPY
     Dates: start: 20070401
  4. WARFARIN SODIUM [Interacting]
     Dates: start: 20070401
  5. WARFARIN SODIUM [Interacting]
     Dates: start: 20071101

REACTIONS (3)
  - DRUG TOXICITY [None]
  - HAEMORRHAGE [None]
  - INTERNATIONAL NORMALISED RATIO INCREASED [None]
